FAERS Safety Report 9142748 (Version 1)
Quarter: 2013Q1

REPORT INFORMATION
  Report Type: Spontaneous
  Country: US (occurrence: US)
  Receive Date: 20130306
  Receipt Date: 20130306
  Transmission Date: 20140127
  Serious: No
  Sender: FDA-Public Use
  Company Number: US-ENDO PHARMACEUTICALS INC.-OPGN20120001

PATIENT
  Sex: Male
  Weight: 119.86 kg

DRUGS (4)
  1. OXYMORPHONE HYDROCHLORIDE [Suspect]
     Indication: BREAKTHROUGH PAIN
     Route: 048
  2. OXYMORPHONE HYDROCHLORIDE [Suspect]
     Indication: BACK PAIN
  3. OPANA ER [Suspect]
     Indication: BACK PAIN
     Route: 048
  4. OPANA ER [Suspect]
     Indication: NERVE INJURY

REACTIONS (2)
  - Benign neoplasm of thyroid gland [Unknown]
  - Drug ineffective [Unknown]
